FAERS Safety Report 15266015 (Version 1)
Quarter: 2018Q3

REPORT INFORMATION
  Report Type: Report from Study
  Country: CA (occurrence: CA)
  Receive Date: 20180810
  Receipt Date: 20180810
  Transmission Date: 20181010
  Serious: Yes (Other)
  Sender: FDA-Public Use
  Company Number: CA-GLAXOSMITHKLINE-CA2018GSK139171

PATIENT
  Age: 69 Year
  Sex: Female

DRUGS (9)
  1. SPIRIVA [Suspect]
     Active Substance: TIOTROPIUM BROMIDE MONOHYDRATE
     Indication: PRODUCT USED FOR UNKNOWN INDICATION
     Dosage: 1 PUFF(S), QD
  2. GABAPENTIN. [Concomitant]
     Active Substance: GABAPENTIN
     Indication: PRODUCT USED FOR UNKNOWN INDICATION
     Dosage: UNK
  3. SYMBICORT [Suspect]
     Active Substance: BUDESONIDE\FORMOTEROL FUMARATE DIHYDRATE
     Indication: PRODUCT USED FOR UNKNOWN INDICATION
     Dosage: 2 PUFF(S), BID
  4. STATEX (MORPHIN) [Concomitant]
     Indication: PRODUCT USED FOR UNKNOWN INDICATION
     Dosage: UNK
  5. NABILONE [Concomitant]
     Active Substance: NABILONE
     Indication: BACK PAIN
     Dosage: UNK
  6. SALBUTAMOL SULPHATE [Suspect]
     Active Substance: ALBUTEROL SULFATE
     Indication: PRODUCT USED FOR UNKNOWN INDICATION
     Dosage: 2 PUFF(S), PRN
  7. MORPHINE [Concomitant]
     Active Substance: MORPHINE
     Indication: PRODUCT USED FOR UNKNOWN INDICATION
     Dosage: UNK
  8. SALBUTAMOL [Suspect]
     Active Substance: ALBUTEROL
     Indication: PRODUCT USED FOR UNKNOWN INDICATION
     Dosage: UNK
  9. NABILONE [Concomitant]
     Active Substance: NABILONE
     Indication: ARTHRALGIA

REACTIONS (20)
  - Pulmonary mass [Unknown]
  - Influenza [Unknown]
  - Cyanosis [Unknown]
  - Gastrointestinal haemorrhage [Unknown]
  - Obstructive airways disorder [Unknown]
  - Weight decreased [Recovered/Resolved]
  - Urinary tract infection [Unknown]
  - Orthopnoea [Unknown]
  - Drug effect incomplete [Unknown]
  - Bronchial wall thickening [Unknown]
  - Asthma [Unknown]
  - Dyspnoea [Unknown]
  - Upper respiratory tract congestion [Recovering/Resolving]
  - Sputum discoloured [Recovering/Resolving]
  - Blood count abnormal [Unknown]
  - Chest discomfort [Unknown]
  - Productive cough [Recovering/Resolving]
  - Respiratory symptom [Unknown]
  - Nocturnal dyspnoea [Unknown]
  - Wheezing [Recovering/Resolving]

NARRATIVE: CASE EVENT DATE: 20170620
